FAERS Safety Report 17149864 (Version 4)
Quarter: 2020Q1

REPORT INFORMATION
  Report Type: Report from Study
  Country: DE (occurrence: DE)
  Receive Date: 20191213
  Receipt Date: 20200116
  Transmission Date: 20200409
  Serious: No
  Sender: FDA-Public Use
  Company Number: NVSC2019DE063939

PATIENT
  Age: 62 Year
  Sex: Female

DRUGS (3)
  1. COSENTYX [Suspect]
     Active Substance: SECUKINUMAB
     Indication: AXIAL SPONDYLOARTHRITIS
     Dosage: 150 MG
     Route: 058
     Dates: end: 20191129
  2. COSENTYX [Suspect]
     Active Substance: SECUKINUMAB
     Indication: PSORIASIS
  3. COSENTYX [Suspect]
     Active Substance: SECUKINUMAB
     Indication: PSORIATIC ARTHROPATHY
     Dosage: 150 MG
     Route: 058
     Dates: start: 20190901

REACTIONS (10)
  - Pruritus [Recovering/Resolving]
  - Alanine aminotransferase decreased [Unknown]
  - Cutaneous vasculitis [Recovering/Resolving]
  - Product use in unapproved indication [Unknown]
  - Platelet count decreased [Unknown]
  - Purulence [Recovering/Resolving]
  - Acne [Recovering/Resolving]
  - Folliculitis [Recovering/Resolving]
  - Psoriasis [Recovering/Resolving]
  - Acanthosis [Recovering/Resolving]

NARRATIVE: CASE EVENT DATE: 201910
